FAERS Safety Report 9519301 (Version 1)
Quarter: 2013Q1

REPORT INFORMATION
  Report Type: Spontaneous
  Country: US (occurrence: None)
  Receive Date: 20130305
  Receipt Date: 20130305
  Transmission Date: 20140127
  Serious: Yes (Disabling)
  Sender: FDA-Public Use
  Company Number: 163-21880-12062309

PATIENT
  Age: 66 Year
  Sex: Male
  Weight: 104.78 kg

DRUGS (18)
  1. POTASSIUM (POTASSIUM) (UNKNOWN)? [Concomitant]
  2. REVLIMID (LENALIDOMIDE) (CAPSULES) [Suspect]
     Indication: PLASMA CELL MYELOMA
     Dosage: 25 MG, 21 IN 28 D, PO
     Route: 048
     Dates: start: 20120329
  3. DEXAMETHASONE (DEXAMETHASONE) (UNKNOWN)? [Concomitant]
  4. TOVIAZ (FESOTERODINE FUMARATE) (UNKNOWN) [Concomitant]
  5. ARICEPT (DONEPEZIL HYDROCHLORIDE) (UNKNOWN)? [Concomitant]
  6. ALLOPURINOL (ALLOPURINOL) (UNKNOWN) [Concomitant]
  7. CITALOPRAM (CITALOPRAM) (UNKNOWN) [Concomitant]
  8. PRAVASTATIN (PRAVASTATIN) (UNKNOWN) [Concomitant]
  9. NAMENDA (MEMANTINE HYDROCHLORIDE) (UNKNOWN) [Concomitant]
  10. TRIAM/HCTZ (DYAZIDE) (UNKNOWN) [Concomitant]
  11. PROSCAR (FINASTERIDE) (UNKNOWN) [Concomitant]
  12. ZOMETA (ZOLEDRONIC ACID) (UNKNOWN) [Concomitant]
  13. VELCADE [Concomitant]
  14. KLOR-CON (POTASSIUM CHLORIDE) (UNKNOWN) [Concomitant]
  15. PROTONIX (UNKNOWN)? [Concomitant]
  16. DONEPEZIL (DONEPEZIL) (UNKNOWN) [Concomitant]
  17. DOXYCYCLINE (DOXYCYCLINE) (UNKNOWN) [Concomitant]
  18. MEGESTROL (MEGESTROL) (TABLETS) [Concomitant]

REACTIONS (5)
  - Burning sensation [None]
  - Pain in extremity [None]
  - Hypotension [None]
  - Weight decreased [None]
  - Weight increased [None]
